FAERS Safety Report 7051407-8 (Version None)
Quarter: 2010Q4

REPORT INFORMATION
  Report Type: 
  Country: None (occurrence: None)
  Receive Date: 20101014
  Receipt Date: 20100927
  Transmission Date: 20110411
  Serious: Yes (Other)
  Sender: FDA-Public Use
  Company Number: 2010P1001081

PATIENT
  Age: 69 Year
  Sex: Male
  Weight: 77.1115 kg

DRUGS (11)
  1. WARFARIN SODIUM [Suspect]
     Indication: AORTIC VALVE REPLACEMENT
     Dosage: 5 MG;QD;PO
     Route: 048
     Dates: start: 19890101
  2. WARFARIN TABLETS 1 MG (NON-TARG) (NO PREF. NAME) [Suspect]
     Indication: AORTIC VALVE REPLACEMENT
     Dosage: 1 MG;QD O MON, FRI;PO
     Route: 048
     Dates: start: 19890101
  3. LEVOTHYROXINE [Concomitant]
  4. SAW PALMETTO [Concomitant]
  5. MULTI-VITAMIN [Concomitant]
  6. CALCIUM MAGNESIUM/ZINC [Concomitant]
  7. L-ARGININE [Concomitant]
  8. CIALIS [Concomitant]
  9. CRANBERRY EXTRACT [Concomitant]
  10. VITAMIN TAB [Concomitant]
  11. PREV MEDS [Concomitant]

REACTIONS (6)
  - CONTUSION [None]
  - INTERNATIONAL NORMALISED RATIO INCREASED [None]
  - OEDEMA PERIPHERAL [None]
  - SKIN DISCOLOURATION [None]
  - SKIN HAEMORRHAGE [None]
  - UPPER LIMB FRACTURE [None]
